FAERS Safety Report 11586227 (Version 2)
Quarter: 2015Q4

REPORT INFORMATION
  Report Type: Spontaneous
  Country: TH (occurrence: TH)
  Receive Date: 20151001
  Receipt Date: 20151005
  Transmission Date: 20160304
  Serious: Yes (Death, Hospitalization)
  Sender: FDA-Public Use
  Company Number: TH-BAXTER-2015BAX053189

PATIENT
  Sex: Female

DRUGS (2)
  1. DIANEAL LOW CALCIUM PERITONEAL DIALYSIS SOLUTION WITH DEXTROSE [Suspect]
     Active Substance: CALCIUM CHLORIDE\DEXTROSE\MAGNESIUM CHLORIDE\SODIUM CHLORIDE\SODIUM LACTATE
     Indication: CHRONIC KIDNEY DISEASE
  2. DIANEAL LOW CALCIUM PERITONEAL DIALYSIS SOLUTION WITH DEXTROSE [Suspect]
     Active Substance: CALCIUM CHLORIDE\DEXTROSE\MAGNESIUM CHLORIDE\SODIUM CHLORIDE\SODIUM LACTATE
     Indication: PERITONEAL DIALYSIS
     Route: 033
     Dates: start: 20150310, end: 20150829

REACTIONS (2)
  - Sepsis [Fatal]
  - Cardiac disorder [Unknown]
